FAERS Safety Report 12484425 (Version 1)
Quarter: 2016Q2

REPORT INFORMATION
  Report Type: Spontaneous
  Country: None (occurrence: None)
  Receive Date: 20160620
  Receipt Date: 20160620
  Transmission Date: 20160815
  Serious: Yes (Life-Threatening, Disabling)
  Sender: FDA-Public Use
  Company Number: None

PATIENT
  Sex: Female

DRUGS (1)
  1. ORTHO EVRA [Suspect]
     Active Substance: ETHINYL ESTRADIOL\NORELGESTROMIN
     Indication: CONTRACEPTION
     Route: 048
     Dates: start: 20020101

REACTIONS (4)
  - Blindness [None]
  - Benign intracranial hypertension [None]
  - Palpitations [None]
  - Sarcoidosis [None]

NARRATIVE: CASE EVENT DATE: 20020101
